FAERS Safety Report 4929497-5 (Version None)
Quarter: 2006Q1

REPORT INFORMATION
  Report Type: 
  Country: None (occurrence: None)
  Receive Date: 20060224
  Receipt Date: 20060210
  Transmission Date: 20060701
  Serious: Yes (Hospitalization)
  Sender: FDA-Public Use
  Company Number: 230005M06DEU

PATIENT
  Age: 44 Year
  Sex: Female

DRUGS (2)
  1. REBIF [Suspect]
     Indication: MULTIPLE SCLEROSIS RELAPSE
     Dosage: 44 MCG, 3 IN 1 WEEKS, SUBCUTANEOUS
     Route: 058
     Dates: start: 20000316, end: 20060123
  2. IBUPROFEN [Concomitant]

REACTIONS (4)
  - CHOLELITHIASIS [None]
  - HYPERTENSION [None]
  - PANCREATITIS NECROTISING [None]
  - TACHYCARDIA [None]
